FAERS Safety Report 11569145 (Version 1)
Quarter: 2015Q3

REPORT INFORMATION
  Report Type: Spontaneous
  Country: US (occurrence: None)
  Receive Date: 20150928
  Receipt Date: 20150928
  Transmission Date: 20151125
  Serious: No
  Sender: FDA-Public Use
  Company Number: None

PATIENT
  Age: 61 Year
  Sex: Male

DRUGS (1)
  1. COPAXONE [Suspect]
     Active Substance: GLATIRAMER ACETATE
     Indication: MULTIPLE SCLEROSIS
     Route: 058
     Dates: start: 20120813, end: 201508

REACTIONS (4)
  - Chest pain [None]
  - Back pain [None]
  - Muscle rigidity [None]
  - Feeling cold [None]

NARRATIVE: CASE EVENT DATE: 201508
